FAERS Safety Report 4832056-6 (Version None)
Quarter: 2005Q4

REPORT INFORMATION
  Report Type: 
  Country: None (occurrence: None)
  Receive Date: 20051116
  Receipt Date: 20051103
  Transmission Date: 20060501
  Serious: Yes (Death, Hospitalization)
  Sender: FDA-Public Use
  Company Number: USA0511112667

PATIENT
  Age: 56 Year
  Sex: Female

DRUGS (4)
  1. CYMBALTA [Suspect]
     Indication: DEPRESSION
     Dosage: 60 MG DAY
     Dates: start: 20050101, end: 20050101
  2. MS CONTIN [Concomitant]
  3. SYNTHROID [Concomitant]
  4. CELEBREX [Concomitant]

REACTIONS (11)
  - ABDOMINAL DISCOMFORT [None]
  - AUTOIMMUNE DISORDER [None]
  - AUTOIMMUNE HEPATITIS [None]
  - DRUG LEVEL DECREASED [None]
  - ENCEPHALOPATHY [None]
  - GENERAL PHYSICAL HEALTH DETERIORATION [None]
  - HEPATIC CIRRHOSIS [None]
  - HEPATIC FIBROSIS [None]
  - HEPATIC NECROSIS [None]
  - PORTAL HYPERTENSION [None]
  - URINARY TRACT DISORDER [None]
